APPROVED DRUG PRODUCT: LURASIDONE HYDROCHLORIDE
Active Ingredient: LURASIDONE HYDROCHLORIDE
Strength: 20MG
Dosage Form/Route: TABLET;ORAL
Application: A210388 | Product #001 | TE Code: AB
Applicant: JUBILANT GENERICS LTD
Approved: Dec 6, 2024 | RLD: No | RS: No | Type: RX